FAERS Safety Report 24693960 (Version 1)
Quarter: 2024Q4

REPORT INFORMATION
  Report Type: Spontaneous
  Country: US (occurrence: US)
  Receive Date: 20241204
  Receipt Date: 20241204
  Transmission Date: 20250114
  Serious: Yes (Other)
  Sender: PACIRA
  Company Number: US-ORG100016242-2024000056

PATIENT
  Age: 68 Year
  Sex: Female
  Weight: 68 kg

DRUGS (4)
  1. ZILRETTA [Suspect]
     Active Substance: TRIAMCINOLONE ACETONIDE
     Indication: Fracture
     Dosage: DOSAGE NOT PROVIDED
     Route: 050
     Dates: start: 20231012, end: 20231012
  2. ZILRETTA [Suspect]
     Active Substance: TRIAMCINOLONE ACETONIDE
     Indication: Fracture
     Dosage: DOSAGE NOT PROVIDED
     Route: 050
     Dates: start: 20240118, end: 20240118
  3. LISINOPRIL [Concomitant]
     Active Substance: LISINOPRIL
     Indication: Hypertension
     Dosage: DOSAGE NOT PROVIDED
     Route: 065
  4. METOPROLOL [Concomitant]
     Active Substance: METOPROLOL
     Indication: Hypertension
     Dosage: DOSAGE NOT PROVIDED
     Route: 065

REACTIONS (4)
  - Hypertensive urgency [Unknown]
  - Discomfort [Unknown]
  - Off label use [Unknown]
  - Sinus headache [Unknown]
